FAERS Safety Report 5663791-8 (Version None)
Quarter: 2008Q1

REPORT INFORMATION
  Report Type: 
  Country: None (occurrence: None)
  Receive Date: 20080314
  Receipt Date: 20080303
  Transmission Date: 20080703
  Serious: Yes (Other)
  Sender: FDA-Public Use
  Company Number: GB-RANBAXY-2008RR-13475

PATIENT

DRUGS (5)
  1. CO-DYDRAMOL TABLETS BP 10/500MG [Suspect]
     Dosage: UNK
     Route: 065
  2. ACETAMINOPHEN [Suspect]
     Route: 065
  3. SEROXAT [Suspect]
     Indication: OVERDOSE
     Dosage: UNK MG, QD
     Route: 065
     Dates: start: 19991121, end: 20030601
  4. FLUOXETINE [Concomitant]
     Dosage: 20 MG, UNK
     Route: 065
  5. FLUOXETINE [Concomitant]
     Dosage: 50 MG, UNK

REACTIONS (13)
  - AGITATION [None]
  - DEPRESSED MOOD [None]
  - DIZZINESS [None]
  - HEADACHE [None]
  - INSOMNIA [None]
  - NAUSEA [None]
  - OVERDOSE [None]
  - PARAESTHESIA [None]
  - SUICIDAL IDEATION [None]
  - TEARFULNESS [None]
  - TENSION [None]
  - VOMITING [None]
  - WITHDRAWAL SYNDROME [None]
